FAERS Safety Report 9000815 (Version 1)
Quarter: 2012Q4

REPORT INFORMATION
  Report Type: Spontaneous
  Country: HK (occurrence: None)
  Receive Date: 20121226
  Receipt Date: 20121226
  Transmission Date: 20130627
  Serious: Yes (Other)
  Sender: FDA-Public Use
  Company Number: 1538029

PATIENT
  Age: 9 Month
  Sex: Male

DRUGS (12)
  1. METHOTREXATE [Suspect]
     Indication: PROPHYLAXIS AGAINST GRAFT VERSUS HOST DISEASE
  2. METHOTREXATE [Suspect]
  3. BUSULFAN [Suspect]
     Indication: BONE MARROW CONDITIONING REGIMEN
  4. CYCLOPHOSPHAMIDE [Suspect]
     Indication: BONE MARROW CONDITIONING REGIMEN
  5. MELPHALAN [Suspect]
     Indication: BONE MARROW CONDITIONING REGIMEN
  6. ANTITHYMOCYTE IMMUNOGLOBULIN [Suspect]
     Indication: GRAFT VERSUS HOST DISEASE
  7. CYCLOSPORIN A [Suspect]
     Indication: GRAFT VERSUS HOST DISEASE
  8. CORTICOSTEROIDS [Suspect]
     Indication: IMMUNOSUPPRESSION
  9. INFLIXIMAB [Suspect]
     Indication: IMMUNOSUPPRESSION
  10. FLUCONAZOLE [Concomitant]
  11. ACYCLOVIR [Concomitant]
  12. COTRIMOXAZOLE [Concomitant]

REACTIONS (8)
  - Graft versus host disease in skin [None]
  - Graft versus host disease in liver [None]
  - Graft versus host disease in intestine [None]
  - Diarrhoea [None]
  - Clostridium difficile infection [None]
  - Influenza [None]
  - Parainfluenzae virus infection [None]
  - Staphylococcal infection [None]
